FAERS Safety Report 20578707 (Version 1)
Quarter: 2022Q1

REPORT INFORMATION
  Report Type: Spontaneous
  Country: US (occurrence: None)
  Receive Date: 20220310
  Receipt Date: 20220310
  Transmission Date: 20220423
  Serious: Yes (Death)
  Sender: FDA-Public Use
  Company Number: None

PATIENT
  Age: 72 Year
  Sex: Female
  Weight: 56 kg

DRUGS (3)
  1. MYLOTARG [Suspect]
     Active Substance: GEMTUZUMAB OZOGAMICIN
     Indication: Acute myeloid leukaemia
     Dosage: FREQUENCY : MONTHLY;?
     Route: 040
     Dates: start: 20220202, end: 20220302
  2. VIDAZA [Concomitant]
     Active Substance: AZACITIDINE
     Dates: start: 20210809, end: 20220302
  3. ADALIMUMAB [Concomitant]
     Active Substance: ADALIMUMAB

REACTIONS (13)
  - Dyspnoea [None]
  - Respiratory distress [None]
  - Infusion related reaction [None]
  - Heart rate increased [None]
  - Blood pressure increased [None]
  - Oxygen saturation decreased [None]
  - Cyanosis [None]
  - Flushing [None]
  - Agonal respiration [None]
  - Cardiac arrest [None]
  - Extrasystoles [None]
  - Pericardial effusion [None]
  - Cardiac tamponade [None]

NARRATIVE: CASE EVENT DATE: 20220302
